FAERS Safety Report 5930412-6 (Version None)
Quarter: 2008Q4

REPORT INFORMATION
  Report Type: 
  Country: None (occurrence: None)
  Receive Date: 20081021
  Receipt Date: 20080922
  Transmission Date: 20090506
  Serious: Yes (Other)
  Sender: FDA-Public Use
  Company Number: 2008-00009

PATIENT
  Sex: Female
  Weight: 71.6683 kg

DRUGS (1)
  1. NEUTROGENA MOISTURE SPF 15UNTINTED: OCTINOXATE7.5%, OCTISALATE 5%, OXY [Suspect]
     Indication: PROPHYLAXIS AGAINST SOLAR RADIATION
     Dosage: TOPICAL 1X
     Route: 061

REACTIONS (1)
  - PRECANCEROUS CELLS PRESENT [None]
